FAERS Safety Report 6247070-6 (Version None)
Quarter: 2009Q2

REPORT INFORMATION
  Report Type: 
  Country: None (occurrence: None)
  Receive Date: 20090624
  Receipt Date: 20090624
  Transmission Date: 20091009
  Serious: Yes (Life-Threatening)
  Sender: FDA-Public Use
  Company Number: None

PATIENT
  Age: 58 Year
  Sex: Male
  Weight: 61 kg

DRUGS (12)
  1. ASPIRIN [Suspect]
     Indication: CORONARY ARTERY DISEASE
     Dosage: 81MG PO QD
     Route: 048
  2. CLOPIDOGREL [Suspect]
     Indication: CORONARY ARTERY DISEASE
     Dosage: 75MG PO QD
     Route: 048
  3. COLACE [Concomitant]
  4. LASIX [Concomitant]
  5. INSULIN [Concomitant]
  6. POTASSIUM CHLORIDE [Concomitant]
  7. OMEPRAZOLE [Concomitant]
  8. SIMVASTATIN [Concomitant]
  9. HYDROCHLOROTHIAZIDE [Concomitant]
  10. IRBESARTAN [Concomitant]
  11. AMITRIPTYLINE HCL [Concomitant]
  12. SPIRONOLACTONE [Concomitant]

REACTIONS (3)
  - FALL [None]
  - HYPONATRAEMIA [None]
  - SUBARACHNOID HAEMORRHAGE [None]
